FAERS Safety Report 13386247 (Version 1)
Quarter: 2017Q1

REPORT INFORMATION
  Report Type: Spontaneous
  Country: US (occurrence: US)
  Receive Date: 20170330
  Receipt Date: 20170330
  Transmission Date: 20170429
  Serious: Yes (Other)
  Sender: FDA-Public Use
  Company Number: US-ROCHE-1910458

PATIENT
  Sex: Female

DRUGS (3)
  1. IVIG [Concomitant]
     Active Substance: HUMAN IMMUNOGLOBULIN G
     Route: 065
     Dates: start: 2015
  2. CELLCEPT [Suspect]
     Active Substance: MYCOPHENOLATE MOFETIL\MYCOPHENOLATE MOFETIL HYDROCHLORIDE
     Indication: PRODUCT USED FOR UNKNOWN INDICATION
     Route: 065
  3. CUVITRU [Suspect]
     Active Substance: HUMAN IMMUNOGLOBULIN G
     Indication: PRODUCT USED FOR UNKNOWN INDICATION
     Route: 065
     Dates: start: 201702

REACTIONS (10)
  - Mass [Unknown]
  - Systemic lupus erythematosus [Unknown]
  - Contusion [Unknown]
  - Loss of consciousness [Unknown]
  - Peripheral swelling [Unknown]
  - Nephropathy [Unknown]
  - Herpes zoster [Unknown]
  - Haematoma [Unknown]
  - Pneumonia [Unknown]
  - Pulmonary embolism [Unknown]
